FAERS Safety Report 18108939 (Version 5)
Quarter: 2023Q2

REPORT INFORMATION
  Report Type: Spontaneous
  Country: US (occurrence: US)
  Receive Date: 20200804
  Receipt Date: 20230525
  Transmission Date: 20230721
  Serious: Yes (Disabling)
  Sender: FDA-Public Use
  Company Number: US-PFIZER INC-2020291193

PATIENT
  Age: 92 Year
  Sex: Male
  Weight: 74.83 kg

DRUGS (3)
  1. VYNDAMAX [Suspect]
     Active Substance: TAFAMIDIS
     Indication: Amyloidosis
     Dosage: 61 MG
     Dates: end: 20221213
  2. VYNDAMAX [Suspect]
     Active Substance: TAFAMIDIS
     Dosage: 61 MG, 1X/DAY
  3. COUMADIN [Concomitant]
     Active Substance: WARFARIN SODIUM
     Dosage: UNK

REACTIONS (6)
  - Road traffic accident [Not Recovered/Not Resolved]
  - Off label use [Unknown]
  - Fatigue [Unknown]
  - Hypoacusis [Unknown]
  - Concussion [Unknown]
  - Speech disorder [Unknown]
